FAERS Safety Report 4597972-1 (Version None)
Quarter: 2005Q1

REPORT INFORMATION
  Report Type: 
  Country: None (occurrence: None)
  Receive Date: 20050125
  Receipt Date: 20040930
  Transmission Date: 20050727
  Serious: No
  Sender: FDA-Public Use
  Company Number: USA040977966

PATIENT
  Sex: Female
  Weight: 52 kg

DRUGS (1)
  1. FORTEO [Suspect]
     Indication: OSTEOPOROSIS
     Dosage: 20 UG/1 DAY
     Dates: start: 20040823

REACTIONS (7)
  - ARTHRALGIA [None]
  - HOT FLUSH [None]
  - INFLUENZA LIKE ILLNESS [None]
  - INJECTION SITE HAEMORRHAGE [None]
  - MIGRAINE [None]
  - MUSCLE SPASMS [None]
  - PAIN IN EXTREMITY [None]
